FAERS Safety Report 16021274 (Version 1)
Quarter: 2019Q1

REPORT INFORMATION
  Report Type: Spontaneous
  Country: US (occurrence: US)
  Receive Date: 20190301
  Receipt Date: 20190301
  Transmission Date: 20190418
  Serious: No
  Sender: FDA-Public Use
  Company Number: US-ASTRAZENECA-2019SE21204

PATIENT
  Sex: Female
  Weight: 61.7 kg

DRUGS (2)
  1. BRILINTA [Suspect]
     Active Substance: TICAGRELOR
     Indication: STENT PLACEMENT
     Route: 048
     Dates: start: 20190130, end: 20190131
  2. REPATHA [Concomitant]
     Active Substance: EVOLOCUMAB
     Indication: BLOOD CHOLESTEROL ABNORMAL
     Dosage: SHOT SHE TAKES TWO TIMES A MONTH STARTING 3 YEARS AGO

REACTIONS (3)
  - Dizziness [Recovering/Resolving]
  - Feeling abnormal [Unknown]
  - Blood pressure increased [Recovered/Resolved]
